FAERS Safety Report 9237604 (Version 2)
Quarter: 2016Q1

REPORT INFORMATION
  Report Type: Spontaneous
  Country: JP (occurrence: JP)
  Receive Date: 20130418
  Receipt Date: 20160311
  Transmission Date: 20160526
  Serious: Yes (Hospitalization, Other)
  Sender: FDA-Public Use
  Company Number: JP-PFIZER INC-2013116323

PATIENT
  Age: 17 Year
  Sex: Female

DRUGS (7)
  1. AMOXAN [Suspect]
     Active Substance: AMOXAPINE
     Indication: DEPRESSION
     Dosage: 25 MG, 3X/DAY
     Route: 048
     Dates: start: 20130129
  2. SOLANAX [Suspect]
     Active Substance: ALPRAZOLAM
     Indication: DEPRESSION
     Dosage: 0.4 MG, 2X/DAY
     Route: 048
     Dates: start: 20130129
  3. LEXAPRO [Concomitant]
     Active Substance: ESCITALOPRAM OXALATE
     Dosage: 20 MG, DAILY
     Route: 048
     Dates: start: 20130129
  4. ERIMIN [Concomitant]
     Active Substance: NIMETAZEPAM
     Dosage: 5 MG, DAILY
     Route: 048
  5. JZOLOFT [Suspect]
     Active Substance: SERTRALINE HYDROCHLORIDE
     Indication: DEPRESSION
     Dosage: UNK
     Route: 048
  6. LEXOTAN [Concomitant]
     Active Substance: BROMAZEPAM
     Dosage: 6MG, DAILY
     Route: 048
  7. RIZE [Concomitant]
     Active Substance: CLOTIAZEPAM
     Dosage: 5 MG, AS NEEDED
     Route: 048

REACTIONS (5)
  - Overdose [Unknown]
  - Product use issue [Unknown]
  - Nasopharyngitis [Unknown]
  - Suicide attempt [Unknown]
  - Toxicity to various agents [Unknown]

NARRATIVE: CASE EVENT DATE: 20130129
